FAERS Safety Report 4724004-4 (Version None)
Quarter: 2005Q3

REPORT INFORMATION
  Report Type: 
  Country: None (occurrence: None)
  Receive Date: 20050721
  Receipt Date: 20050705
  Transmission Date: 20060218
  Serious: Yes (Other)
  Sender: FDA-Public Use
  Company Number: TRP_0167_2005

PATIENT
  Age: 54 Year
  Sex: Female

DRUGS (12)
  1. RIBASPHERE [Suspect]
     Indication: HEPATITIS C
     Dosage: DF PO
     Route: 048
     Dates: start: 20050125
  2. PEG/INTRON/PEGINERFERON ALFA-2B/SCHERING-PLOUGH/REDIPEN [Suspect]
     Indication: HEPATITIS C
     Dosage: DF SC
     Route: 058
     Dates: start: 20050125
  3. CALCIUM GLUCONATE [Concomitant]
  4. MORPHINE SULFATE [Concomitant]
  5. OXYBUTYNIN [Concomitant]
  6. RANITIDINE [Concomitant]
  7. SOMA [Concomitant]
  8. TRAZODONE HCL [Concomitant]
  9. VICODIN [Concomitant]
  10. ZOLOFT [Concomitant]
  11. SOMA COMPOUNDED TABLETS [Concomitant]
  12. VICODIN [Concomitant]

REACTIONS (2)
  - HYPOTHYROIDISM [None]
  - WEIGHT DECREASED [None]
